FAERS Safety Report 8560097-4 (Version None)
Quarter: 2012Q3

REPORT INFORMATION
  Report Type: 
  Country: None (occurrence: None)
  Receive Date: 20120723
  Receipt Date: 20120702
  Transmission Date: 20120928
  Serious: Yes (Other)
  Sender: FDA-Public Use
  Company Number: EUS-2012-00475

PATIENT

DRUGS (2)
  1. GLUCOCORTICOSTEROIDS (GLUCOCORTICOSTEROIDS) [Concomitant]
  2. ASPARAGINASE (UNSPECIFIED) (ASPARAGINASE) [Suspect]
     Indication: ACUTE LYMPHOCYTIC LEUKAEMIA

REACTIONS (3)
  - HYPERCHOLESTEROLAEMIA [None]
  - HYPERTRIGLYCERIDAEMIA [None]
  - LOW DENSITY LIPOPROTEIN INCREASED [None]
